FAERS Safety Report 11922070 (Version 2)
Quarter: 2016Q1

REPORT INFORMATION
  Report Type: Report from Study
  Country: US (occurrence: US)
  Receive Date: 20160115
  Receipt Date: 20160119
  Transmission Date: 20160526
  Serious: Yes (Death)
  Sender: FDA-Public Use
  Company Number: US-B.I. PHARMACEUTICALS,INC./RIDGEFIELD-2015-BI-56285BP

PATIENT
  Sex: Male

DRUGS (3)
  1. PREDNISONE. [Concomitant]
     Active Substance: PREDNISONE
     Indication: PRODUCT USED FOR UNKNOWN INDICATION
     Route: 065
  2. OFEV [Suspect]
     Active Substance: NINTEDANIB
     Dosage: 200 MG
     Route: 048
  3. OFEV [Suspect]
     Active Substance: NINTEDANIB
     Indication: IDIOPATHIC PULMONARY FIBROSIS
     Dosage: 300 MG
     Route: 048
     Dates: start: 20150820

REACTIONS (13)
  - Chest pain [Unknown]
  - Somnolence [Unknown]
  - Asthenia [Unknown]
  - Insomnia [Unknown]
  - Dyspnoea [Unknown]
  - Dizziness [Unknown]
  - Dyspnoea [Fatal]
  - Bone pain [Unknown]
  - Sleep disorder [Unknown]
  - Headache [Unknown]
  - Tremor [Unknown]
  - Rectal haemorrhage [Recovered/Resolved]
  - Abdominal pain upper [Unknown]
